FAERS Safety Report 6748670-7 (Version None)
Quarter: 2010Q2

REPORT INFORMATION
  Report Type: 
  Country: None (occurrence: None)
  Receive Date: 20100527
  Receipt Date: 20100527
  Transmission Date: 20101027
  Serious: Yes (Hospitalization, Disabling, Other)
  Sender: FDA-Public Use
  Company Number: None

PATIENT
  Sex: Male
  Weight: 90.7194 kg

DRUGS (2)
  1. RISPERIDONE [Suspect]
     Indication: DEMENTIA ALZHEIMER'S TYPE
     Dosage: 0.5 MG 1 6:00PM
     Dates: start: 20100327
  2. RISPERIDONE [Suspect]
     Indication: RESTLESSNESS
     Dosage: 0.5 MG 1 6:00PM
     Dates: start: 20100327

REACTIONS (6)
  - ABASIA [None]
  - BLOOD GLUCOSE INCREASED [None]
  - COMMUNICATION DISORDER [None]
  - FALL [None]
  - MYOCARDIAL INFARCTION [None]
  - PNEUMONIA [None]
